FAERS Safety Report 9692244 (Version 1)
Quarter: 2013Q4

REPORT INFORMATION
  Report Type: Spontaneous
  Country: US (occurrence: US)
  Receive Date: 20131118
  Receipt Date: 20131118
  Transmission Date: 20140711
  Serious: No
  Sender: FDA-Public Use
  Company Number: US-009507513-1311USA005358

PATIENT
  Sex: Female

DRUGS (3)
  1. DULERA [Suspect]
     Indication: ASTHMA
     Dosage: 200/5MICROGRAM/2 INHALATIONS TWICE DAILY
     Route: 055
     Dates: start: 20131001
  2. DIGOXIN [Concomitant]
     Dosage: .125 MG, QD
  3. SYNTHROID [Concomitant]
     Dosage: .075 MG, QD

REACTIONS (1)
  - Atrial fibrillation [Not Recovered/Not Resolved]
